FAERS Safety Report 5746421-6 (Version None)
Quarter: 2008Q2

REPORT INFORMATION
  Report Type: 
  Country: None (occurrence: None)
  Receive Date: 20080522
  Receipt Date: 20080514
  Transmission Date: 20081010
  Serious: Yes (Hospitalization)
  Sender: FDA-Public Use
  Company Number: A0728144A

PATIENT
  Age: 58 Year
  Sex: Female
  Weight: 66 kg

DRUGS (2)
  1. LAPATINIB [Suspect]
     Dosage: 1250MG PER DAY
     Route: 048
     Dates: start: 20080509
  2. TOPOTECAN [Suspect]
     Dosage: 4MGM2 CYCLIC
     Route: 042
     Dates: start: 20080509

REACTIONS (1)
  - HYPOKALAEMIA [None]
